FAERS Safety Report 5031149-0 (Version None)
Quarter: 2006Q2

REPORT INFORMATION
  Report Type: 
  Country: None (occurrence: None)
  Receive Date: 20060621
  Receipt Date: 20060608
  Transmission Date: 20061013
  Serious: Yes (Other)
  Sender: FDA-Public Use
  Company Number: PHBS2006AU08930

PATIENT
  Age: 28 Year
  Sex: Female

DRUGS (1)
  1. PAMIDRONATE DISODIUM [Suspect]
     Indication: OSTEOGENESIS IMPERFECTA
     Dosage: 1 MG/KG, EVERY 2 MONTHS
     Route: 065
     Dates: end: 20030101

REACTIONS (5)
  - BACK PAIN [None]
  - DRUG EXPOSURE BEFORE PREGNANCY [None]
  - NORMAL NEWBORN [None]
  - PELVIC PAIN [None]
  - PREMATURE BABY [None]
